FAERS Safety Report 9751100 (Version 1)
Quarter: 2013Q4

REPORT INFORMATION
  Report Type: Spontaneous
  Country: TR (occurrence: TR)
  Receive Date: 20131212
  Receipt Date: 20131212
  Transmission Date: 20140711
  Serious: Yes (Other)
  Sender: FDA-Public Use
  Company Number: TR-TEVA-447906ISR

PATIENT
  Sex: 0

DRUGS (1)
  1. GABATEVA [Suspect]

REACTIONS (1)
  - Drug dependence [Unknown]
